FAERS Safety Report 7204387-6 (Version None)
Quarter: 2010Q4

REPORT INFORMATION
  Report Type: 
  Country: None (occurrence: None)
  Receive Date: 20101230
  Receipt Date: 20101222
  Transmission Date: 20110411
  Serious: Yes (Hospitalization)
  Sender: FDA-Public Use
  Company Number: US-JNJFOC-20101207858

PATIENT
  Age: 23 Year
  Sex: Female

DRUGS (6)
  1. INVEGA SUSTENNA [Suspect]
     Indication: SCHIZOPHRENIA
     Route: 030
  2. INVEGA SUSTENNA [Suspect]
     Route: 030
  3. INVEGA SUSTENNA [Suspect]
     Route: 030
  4. PROZAC [Concomitant]
     Indication: DRUG EFFECT INCREASED
  5. LORAZEPAM [Concomitant]
     Indication: ANXIETY
     Dosage: 1 MG EVERY 4 HOURS AS NEEDED
  6. AMBIEN [Concomitant]
     Indication: INSOMNIA

REACTIONS (2)
  - DRUG INEFFECTIVE [None]
  - INAPPROPRIATE SCHEDULE OF DRUG ADMINISTRATION [None]
